FAERS Safety Report 25841668 (Version 1)
Quarter: 2025Q3

REPORT INFORMATION
  Report Type: Spontaneous
  Country: TW (occurrence: TW)
  Receive Date: 20250924
  Receipt Date: 20250924
  Transmission Date: 20251021
  Serious: Yes (Other)
  Sender: MERCK SHARP & DOHME LLC
  Company Number: TW-TFDA-TDS-1140009868

PATIENT
  Age: 90 Year
  Sex: Female
  Weight: 49.5 kg

DRUGS (5)
  1. INVANZ [Suspect]
     Active Substance: ERTAPENEM SODIUM
     Dosage: IV DRIP
     Route: 042
     Dates: start: 20250806, end: 20250823
  2. CEFIXIME [Suspect]
     Active Substance: CEFIXIME
     Route: 048
     Dates: start: 20250829, end: 20250831
  3. CEFUROXIME [Suspect]
     Active Substance: CEFUROXIME
     Route: 048
     Dates: start: 20250826, end: 20250906
  4. TARGOCID [Suspect]
     Active Substance: TEICOPLANIN
     Dosage: IV DRIP
     Route: 042
     Dates: start: 20250802, end: 20250820
  5. ESOMEPRAZOLE [Concomitant]
     Active Substance: ESOMEPRAZOLE
     Dates: start: 20250731, end: 20250902

REACTIONS (1)
  - Toxic epidermal necrolysis [Not Recovered/Not Resolved]

NARRATIVE: CASE EVENT DATE: 20250911
